FAERS Safety Report 7399856-2 (Version None)
Quarter: 2011Q2

REPORT INFORMATION
  Report Type: 
  Country: None (occurrence: None)
  Receive Date: 20110407
  Receipt Date: 20110323
  Transmission Date: 20111010
  Serious: Yes (Other)
  Sender: FDA-Public Use
  Company Number: US-JNJFOC-20110311876

PATIENT
  Sex: Female
  Weight: 70.76 kg

DRUGS (6)
  1. DURAGESIC [Suspect]
     Route: 062
  2. FENTANYL-100 [Suspect]
     Indication: BACK PAIN
     Route: 062
  3. FENTANYL-100 [Suspect]
     Indication: BACK PAIN
     Route: 062
  4. DURAGESIC [Suspect]
     Indication: BACK PAIN
     Route: 062
  5. DURAGESIC [Suspect]
     Route: 062
  6. CORTISONE [Concomitant]
     Indication: BACK PAIN
     Route: 014

REACTIONS (8)
  - DRUG INEFFECTIVE [None]
  - HYPOKINESIA [None]
  - FEELING COLD [None]
  - THERAPEUTIC RESPONSE DECREASED [None]
  - NASOPHARYNGITIS [None]
  - HOT FLUSH [None]
  - PNEUMONIA [None]
  - INFLUENZA [None]
